FAERS Safety Report 10766211 (Version 1)
Quarter: 2015Q1

REPORT INFORMATION
  Report Type: Report from Study
  Country: CN (occurrence: CN)
  Receive Date: 20150205
  Receipt Date: 20150205
  Transmission Date: 20150721
  Serious: Yes (Hospitalization)
  Sender: FDA-Public Use
  Company Number: CN-ASTRAZENECA-2015SE06849

PATIENT
  Age: 26975 Day
  Sex: Male

DRUGS (13)
  1. BRILINTA [Suspect]
     Active Substance: TICAGRELOR
     Indication: ACUTE CORONARY SYNDROME
     Dosage: LOADING DOSE
     Route: 048
     Dates: start: 20140712
  2. POTASSIUM MAGNESIUM ASPARTATE FOR INJECTION [Concomitant]
     Indication: PROPHYLAXIS
     Route: 042
  3. LOW MOLECULAR WEIGHT HEPARIN CALCIUM INJECTION [Concomitant]
     Route: 058
     Dates: start: 20140723
  4. TIROFIBAN HYDROCHLORIDE AND SODIUM CHLORIDE INJECTION [Concomitant]
     Indication: MYOCARDIAL ISCHAEMIA
     Route: 042
     Dates: start: 20140712
  5. BRILINTA [Suspect]
     Active Substance: TICAGRELOR
     Indication: ACUTE CORONARY SYNDROME
     Dosage: MAINTENANCE DOSE
     Route: 048
     Dates: start: 20140713
  6. LIPITOR [Concomitant]
     Active Substance: ATORVASTATIN CALCIUM
     Indication: DYSLIPIDAEMIA
     Route: 048
     Dates: start: 20140713
  7. COENZYME Q10 TABLETS [Concomitant]
     Indication: CEREBROVASCULAR DISORDER
     Route: 048
     Dates: start: 20140713
  8. INSULIN [Concomitant]
     Active Substance: INSULIN NOS
     Route: 042
  9. LANSOPRAZOLE. [Concomitant]
     Active Substance: LANSOPRAZOLE
     Indication: PROPHYLAXIS
     Route: 042
     Dates: start: 20140712
  10. DOPAMINE HYDROCHLORIDE INJECTION [Concomitant]
     Indication: CARDIAC FAILURE
     Route: 042
     Dates: start: 20140712
  11. AMIODARONE INJECTION [Concomitant]
     Route: 042
     Dates: start: 20140712
  12. CREATININE PHOSPHATE SODIUM [Concomitant]
     Active Substance: CREATININE
     Indication: CEREBROVASCULAR DISORDER
     Route: 042
     Dates: start: 20140712
  13. ACETYLSALICYLIC ACID [Suspect]
     Active Substance: ASPIRIN
     Indication: PLATELET AGGREGATION INHIBITION
     Route: 048
     Dates: start: 20140713, end: 20140922

REACTIONS (1)
  - Cardiac failure [Not Recovered/Not Resolved]

NARRATIVE: CASE EVENT DATE: 20150116
